FAERS Safety Report 6379185-6 (Version None)
Quarter: 2009Q3

REPORT INFORMATION
  Report Type: 
  Country: None (occurrence: None)
  Receive Date: 20090923
  Receipt Date: 20090914
  Transmission Date: 20100115
  Serious: Yes (Other)
  Sender: FDA-Public Use
  Company Number: 381848

PATIENT
  Age: 58 Year
  Sex: Male

DRUGS (7)
  1. FENTANYL-100 [Suspect]
     Indication: GENERAL ANAESTHESIA
     Dosage: 50 MCG, INTRAVENOUS; 160 MG; 50 MCG; INTRAVENOUS
     Route: 042
  2. PROPOFOL [Concomitant]
  3. CARBIDOPA-LEVODOPA [Concomitant]
  4. ENTACAPONE [Concomitant]
  5. ROPINIROLE [Concomitant]
  6. (AMANTADINE) [Concomitant]
  7. TRIHEXYPHENIDYL HCL [Concomitant]

REACTIONS (9)
  - BRADYKINESIA [None]
  - DRUG EFFECT DECREASED [None]
  - DYSSTASIA [None]
  - HETEROPHORIA [None]
  - HYPOCHROMASIA [None]
  - INCISION SITE PAIN [None]
  - MASKED FACIES [None]
  - MUSCLE RIGIDITY [None]
  - TREMOR [None]
